FAERS Safety Report 8604609-0 (Version None)
Quarter: 2012Q3

REPORT INFORMATION
  Report Type: 
  Country: None (occurrence: None)
  Receive Date: 20120807
  Receipt Date: 20120723
  Transmission Date: 20120928
  Serious: Yes (Life-Threatening, Hospitalization, Other)
  Sender: FDA-Public Use
  Company Number: 20120472

PATIENT
  Age: 22 Year
  Sex: Female

DRUGS (4)
  1. TPN [Concomitant]
  2. VENOFER [Suspect]
     Indication: MALABSORPTION
     Dosage: INJECTION NOS
     Dates: start: 20111201, end: 20111201
  3. LIPIDS [Concomitant]
  4. PHENOBARBITAL TAB [Concomitant]

REACTIONS (7)
  - HEART RATE INCREASED [None]
  - DRUG HYPERSENSITIVITY [None]
  - CONVULSION [None]
  - TOXICITY TO VARIOUS AGENTS [None]
  - RESPIRATORY ARREST [None]
  - OXYGEN SATURATION DECREASED [None]
  - FLUSHING [None]
